FAERS Safety Report 25919703 (Version 1)
Quarter: 2025Q4

REPORT INFORMATION
  Report Type: Spontaneous
  Country: JP (occurrence: JP)
  Receive Date: 20251014
  Receipt Date: 20251014
  Transmission Date: 20260117
  Serious: Yes (Life-Threatening, Hospitalization, Other)
  Sender: PFIZER
  Company Number: JP-PFIZER INC-202500202298

PATIENT
  Age: 70 Year
  Sex: Male

DRUGS (8)
  1. FLUCONAZOLE [Suspect]
     Active Substance: FLUCONAZOLE
     Indication: Candida infection
     Dosage: UNK, STARTED ON POD 12 AND DISCONTINUED ON POD 36
  2. PREDNISOLONE [Concomitant]
     Active Substance: PREDNISOLONE
     Indication: Pneumocystis jirovecii pneumonia
     Dosage: 10 MG, DAILY
  3. PREDNISOLONE [Concomitant]
     Active Substance: PREDNISOLONE
     Dosage: 5 MG, DAILY
  4. PREDNISOLONE [Concomitant]
     Active Substance: PREDNISOLONE
     Dosage: 80 MG, DAILY
     Route: 042
  5. PREDNISOLONE [Concomitant]
     Active Substance: PREDNISOLONE
     Dosage: 40 MG, DAILY
  6. CEFTRIAXONE [Concomitant]
     Active Substance: CEFTRIAXONE
     Indication: Pneumocystis jirovecii pneumonia
     Dosage: UNK, DISCONTINUED ON POD 28
  7. APIXABAN [Concomitant]
     Active Substance: APIXABAN
     Indication: Anticoagulant therapy
     Dosage: UNK
     Route: 048
  8. HEPARIN [Concomitant]
     Active Substance: HEPARIN SODIUM
     Indication: Anticoagulant therapy
     Dosage: UNK
     Route: 048

REACTIONS (1)
  - Drug resistance [Unknown]
